FAERS Safety Report 8321975-4 (Version None)
Quarter: 2012Q2

REPORT INFORMATION
  Report Type: 
  Country: None (occurrence: None)
  Receive Date: 20120430
  Receipt Date: 20120419
  Transmission Date: 20120825
  Serious: Yes (Disabling, Other)
  Sender: FDA-Public Use
  Company Number: FR-JNJFOC-20120405662

PATIENT
  Age: 25 Year
  Sex: Male
  Weight: 97 kg

DRUGS (5)
  1. REMICADE [Suspect]
     Route: 042
     Dates: start: 20110920
  2. REMICADE [Suspect]
     Route: 042
     Dates: start: 20110906
  3. REMICADE [Suspect]
     Route: 042
     Dates: start: 20111220
  4. REMICADE [Suspect]
     Route: 042
     Dates: start: 20120223
  5. REMICADE [Suspect]
     Indication: COLITIS ULCERATIVE
     Route: 042
     Dates: start: 20111018

REACTIONS (3)
  - ECZEMA [None]
  - PSORIASIS [None]
  - TRANSAMINASES INCREASED [None]
